FAERS Safety Report 18489771 (Version 3)
Quarter: 2020Q4

REPORT INFORMATION
  Report Type: Spontaneous
  Country: US (occurrence: US)
  Receive Date: 20201111
  Receipt Date: 20201202
  Transmission Date: 20210114
  Serious: Yes (Other)
  Sender: FDA-Public Use
  Company Number: US-PFIZER INC-2020444880

PATIENT

DRUGS (1)
  1. EPINEPHRINE/LIDOCAINE HYDROCHLORIDE [Suspect]
     Active Substance: EPINEPHRINE\LIDOCAINE HYDROCHLORIDE
     Indication: LOCAL ANAESTHESIA
     Dosage: UNK
     Route: 031

REACTIONS (9)
  - Retinal tear [Recovered/Resolved]
  - Intraocular pressure increased [Recovered/Resolved]
  - Visual acuity reduced [Recovered/Resolved]
  - Exposure via eye contact [Unknown]
  - Mydriasis [Recovered/Resolved]
  - Incorrect route of product administration [Unknown]
  - Blindness [Recovered/Resolved]
  - Corneal opacity [Recovered/Resolved]
  - Corneal oedema [Recovered/Resolved]
